FAERS Safety Report 23798618 (Version 1)
Quarter: 2024Q2

REPORT INFORMATION
  Report Type: Spontaneous
  Country: US (occurrence: US)
  Receive Date: 20240430
  Receipt Date: 20240430
  Transmission Date: 20240715
  Serious: Yes (Other)
  Sender: FDA-Public Use
  Company Number: US-JOURNEY MEDICAL CORPORATION-2024JNY00066

PATIENT
  Sex: Female

DRUGS (3)
  1. QBREXZA [Suspect]
     Active Substance: GLYCOPYRRONIUM TOSYLATE
     Indication: Hyperhidrosis
     Dosage: ONE CLOTH USED ACROSS BOTH ARMPITS ONCE DAILY AT NIGHT BEFORE BED.
     Route: 061
     Dates: start: 2024, end: 20240407
  2. QBREXZA [Suspect]
     Active Substance: GLYCOPYRRONIUM TOSYLATE
     Dosage: UNK AS NEEDED
     Route: 061
     Dates: start: 2024, end: 2024
  3. UNSPECIFIED ACNE PILL [Concomitant]

REACTIONS (16)
  - Suicidal ideation [Recovered/Resolved]
  - Von Willebrand^s disease [Unknown]
  - Visual impairment [Recovered/Resolved]
  - Diplopia [Recovered/Resolved]
  - Tongue coated [Recovered/Resolved]
  - Peripheral swelling [Recovered/Resolved]
  - Lacrimation decreased [Recovered/Resolved]
  - Stress [Unknown]
  - Anxiety [Unknown]
  - Aggression [Unknown]
  - Emotional distress [Unknown]
  - Pain [Unknown]
  - Vision blurred [Recovered/Resolved]
  - Constipation [Recovered/Resolved]
  - Mydriasis [Recovered/Resolved]
  - Unevaluable event [Unknown]

NARRATIVE: CASE EVENT DATE: 20240101
